FAERS Safety Report 19138739 (Version 2)
Quarter: 2021Q2

REPORT INFORMATION
  Report Type: Spontaneous
  Country: US (occurrence: US)
  Receive Date: 20210415
  Receipt Date: 20210614
  Transmission Date: 20210717
  Serious: Yes (Other)
  Sender: FDA-Public Use
  Company Number: US-TERSERA THERAPEUTICS LLC-2020TRS003062

PATIENT

DRUGS (5)
  1. XERMELO [Suspect]
     Active Substance: TELOTRISTAT ETHYL
     Dosage: 250 MG, TID (1 TABLET BY MOUTH 3 TIMES A DAY)
     Route: 048
  2. XERMELO [Suspect]
     Active Substance: TELOTRISTAT ETHYL
     Indication: CARCINOID TUMOUR OF THE GASTROINTESTINAL TRACT
     Dosage: 250 MG, TID
     Route: 048
     Dates: start: 20170817
  3. XERMELO [Suspect]
     Active Substance: TELOTRISTAT ETHYL
     Dosage: 250 MG, BID
     Route: 048
  4. XERMELO [Suspect]
     Active Substance: TELOTRISTAT ETHYL
     Dosage: 250 MG, (SOMETIMES TOOK 2 INSTEAD OF 3)
     Route: 048
  5. XERMELO [Suspect]
     Active Substance: TELOTRISTAT ETHYL
     Dosage: 250 MG, TID (1 TABLET BY MOUTH 3 TIMES A DAY)
     Route: 048

REACTIONS (3)
  - Magnetic resonance imaging abnormal [Unknown]
  - Renal cell carcinoma [Unknown]
  - Fatigue [Unknown]

NARRATIVE: CASE EVENT DATE: 202012
